FAERS Safety Report 14259174 (Version 4)
Quarter: 2018Q1

REPORT INFORMATION
  Report Type: Report from Study
  Country: US (occurrence: US)
  Receive Date: 20171207
  Receipt Date: 20180103
  Transmission Date: 20180508
  Serious: Yes (Disabling, Other)
  Sender: FDA-Public Use
  Company Number: PHEH2017US038953

PATIENT
  Age: 83 Year
  Sex: Male
  Weight: 77.8 kg

DRUGS (3)
  1. GLEEVEC [Suspect]
     Active Substance: IMATINIB MESYLATE
     Dosage: 100 MG, QD
     Route: 048
     Dates: start: 20170919, end: 201712
  2. GLEEVEC [Suspect]
     Active Substance: IMATINIB MESYLATE
     Indication: CHRONIC MYELOID LEUKAEMIA
     Dosage: 300 MG, QD
     Route: 048
     Dates: start: 20151228
  3. GLEEVEC [Suspect]
     Active Substance: IMATINIB MESYLATE
     Dosage: 300 MG, QD
     Route: 048

REACTIONS (9)
  - Drug dispensing error [Not Recovered/Not Resolved]
  - Incorrect dose administered [Unknown]
  - Malaise [Unknown]
  - Hypotension [Not Recovered/Not Resolved]
  - Condition aggravated [Unknown]
  - Malignant neoplasm progression [Unknown]
  - Fatigue [Unknown]
  - Asthenia [Unknown]
  - Chronic myeloid leukaemia [Unknown]

NARRATIVE: CASE EVENT DATE: 20170919
